FAERS Safety Report 8322849-5 (Version None)
Quarter: 2012Q2

REPORT INFORMATION
  Report Type: 
  Country: None (occurrence: None)
  Receive Date: 20120430
  Receipt Date: 20120416
  Transmission Date: 20120825
  Serious: Yes (Other)
  Sender: FDA-Public Use
  Company Number: FR-ROCHE-GNE279301

PATIENT
  Sex: Male
  Weight: 31 kg

DRUGS (1)
  1. SOMATROPIN [Suspect]
     Indication: GROWTH HORMONE DEFICIENCY
     Dosage: 0.035 MG/KG, 7 TIMES A WEEK
     Dates: start: 20081115

REACTIONS (3)
  - COLOUR BLINDNESS [None]
  - HEADACHE [None]
  - MYOKYMIA [None]
